FAERS Safety Report 9762128 (Version 1)
Quarter: 2013Q4

REPORT INFORMATION
  Report Type: Spontaneous
  Country: US (occurrence: US)
  Receive Date: 20131216
  Receipt Date: 20131216
  Transmission Date: 20140711
  Serious: No
  Sender: FDA-Public Use
  Company Number: US-BIOGENIDEC-2013BI103519

PATIENT
  Sex: Female

DRUGS (11)
  1. TECFIDERA [Suspect]
     Indication: MULTIPLE SCLEROSIS
     Route: 048
  2. MELATONIN [Concomitant]
  3. VITAMIN D3 [Concomitant]
  4. LASIX [Concomitant]
  5. LEVOTHYROXINE SODIUM [Concomitant]
  6. BACLOFEN [Concomitant]
  7. DETROL LA [Concomitant]
  8. PROVIGIL [Concomitant]
  9. TRICOR [Concomitant]
  10. LIPITOR [Concomitant]
  11. BETAPACE [Concomitant]

REACTIONS (2)
  - Diarrhoea [Recovered/Resolved]
  - Abdominal pain upper [Recovered/Resolved]
